FAERS Safety Report 11558711 (Version 1)
Quarter: 2015Q3

REPORT INFORMATION
  Report Type: Spontaneous
  Country: US (occurrence: US)
  Receive Date: 20150928
  Receipt Date: 20150928
  Transmission Date: 20151125
  Serious: Yes (Other)
  Sender: FDA-Public Use
  Company Number: US-JNJFOC-20150915884

PATIENT
  Sex: Male
  Weight: 104.33 kg

DRUGS (1)
  1. VISINE MAXIMUM REDNESS RELIEF FORMULA [Suspect]
     Active Substance: GLYCERIN\HYPROMELLOSES\POLYETHYLENE GLYCOL 400\TETRAHYDROZOLINE HYDROCHLORIDE
     Indication: OCULAR HYPERAEMIA
     Dosage: ONCE
     Route: 047

REACTIONS (4)
  - Drug ineffective [Unknown]
  - Eye irritation [Unknown]
  - Blindness transient [Recovering/Resolving]
  - Product quality issue [None]
